FAERS Safety Report 7346133-1 (Version None)
Quarter: 2011Q1

REPORT INFORMATION
  Report Type: 
  Country: None (occurrence: None)
  Receive Date: 20110311
  Receipt Date: 20100917
  Transmission Date: 20110831
  Serious: Yes (Hospitalization)
  Sender: FDA-Public Use
  Company Number: US-BAYER-201014019NA

PATIENT
  Sex: Female
  Weight: 63.946 kg

DRUGS (2)
  1. LEXAPRO [Concomitant]
     Dosage: 10 MG, UNK
  2. YASMIN [Suspect]
     Indication: PRODUCT USED FOR UNKNOWN INDICATION
     Route: 048
     Dates: start: 19980101, end: 20070130

REACTIONS (4)
  - TACHYCARDIA [None]
  - ANXIETY [None]
  - PULMONARY EMBOLISM [None]
  - DYSPNOEA [None]
